FAERS Safety Report 5076300-1 (Version None)
Quarter: 2006Q3

REPORT INFORMATION
  Report Type: 
  Country: None (occurrence: None)
  Receive Date: 20060807
  Receipt Date: 20050624
  Transmission Date: 20061208
  Serious: Yes (Other)
  Sender: FDA-Public Use
  Company Number: 2005BH000417

PATIENT
  Sex: 0

DRUGS (1)
  1. HEPARIN SODIUM [Suspect]
     Indication: THROMBOSIS PROPHYLAXIS
     Dosage: IV
     Route: 042

REACTIONS (3)
  - ANAPHYLACTOID REACTION [None]
  - HEPARIN-INDUCED THROMBOCYTOPENIA [None]
  - INJECTION SITE INFLAMMATION [None]
